FAERS Safety Report 9399938 (Version 2)
Quarter: 2013Q3

REPORT INFORMATION
  Report Type: Spontaneous
  Country: FR (occurrence: FR)
  Receive Date: 20130715
  Receipt Date: 20130726
  Transmission Date: 20140515
  Serious: Yes (Other)
  Sender: FDA-Public Use
  Company Number: FR-BRACCO-001163

PATIENT
  Age: 32 Year
  Sex: Female

DRUGS (4)
  1. NSAID^S [Concomitant]
  2. MULTIHANCE [Suspect]
     Indication: NUCLEAR MAGNETIC RESONANCE IMAGING
     Route: 042
     Dates: start: 20130627, end: 20130627
  3. IBUPROFEN [Suspect]
     Route: 048
  4. TAMOXIFEN [Suspect]
     Indication: BREAST CANCER

REACTIONS (8)
  - Thrombocytopenia [Recovered/Resolved]
  - Haematoma [Recovered/Resolved]
  - Thrombocytopenic purpura [Recovered/Resolved]
  - Paraesthesia [Recovered/Resolved]
  - Feeling cold [Recovered/Resolved]
  - Headache [Recovered/Resolved]
  - Nausea [Recovered/Resolved]
  - Visual impairment [Recovered/Resolved]
